FAERS Safety Report 6668747-4 (Version None)
Quarter: 2010Q2

REPORT INFORMATION
  Report Type: 
  Country: None (occurrence: None)
  Receive Date: 20100406
  Receipt Date: 20100323
  Transmission Date: 20101027
  Serious: Yes (Death)
  Sender: FDA-Public Use
  Company Number: JP-BAYER-201020544GPV

PATIENT
  Age: 15 Year
  Sex: Male

DRUGS (10)
  1. FLUDARABINE PHOSPHATE [Suspect]
     Indication: STEM CELL TRANSPLANT
  2. CYCLOPHOSPHAMIDE [Suspect]
     Indication: STEM CELL TRANSPLANT
  3. HEPARIN [Concomitant]
     Indication: PROPHYLAXIS
     Dosage: LOW-MOLEXULAR WEIGHT HEPARIN 100 U/KG/DAY
  4. URSODEOXYCHOLIC ACID [Concomitant]
     Indication: PROPHYLAXIS
  5. POLYMYCIN B [Concomitant]
     Indication: ANTIFUNGAL PROPHYLAXIS
     Route: 048
  6. TOBRAMYCIN B [Concomitant]
     Indication: ANTIFUNGAL PROPHYLAXIS
  7. VANCOMYCIN [Concomitant]
     Indication: ANTIFUNGAL PROPHYLAXIS
     Route: 034
  8. ACYCLOVIR [Concomitant]
     Indication: ANTIVIRAL PROPHYLAXIS
     Route: 048
  9. ANTI-CYTOMEGALOVIRUS (CMV) HIGH TITER GAMMA-GLOBULIN [Concomitant]
     Indication: ANTIVIRAL PROPHYLAXIS
  10. GRANULOCYTE COLONY-STIMULATING FACTOR [Concomitant]
     Indication: STEM CELL TRANSPLANT
     Dosage: FROM DAY +5 TO ENGRAFTMENT
     Route: 042

REACTIONS (1)
  - VENOOCCLUSIVE DISEASE [None]
